FAERS Safety Report 19884961 (Version 1)
Quarter: 2021Q3

REPORT INFORMATION
  Report Type: Spontaneous
  Country: GB (occurrence: GB)
  Receive Date: 20210927
  Receipt Date: 20210927
  Transmission Date: 20211014
  Serious: Yes (Other)
  Sender: FDA-Public Use
  Company Number: GB-BIOVITRUM-2021GB8495

PATIENT
  Age: 42 Year
  Sex: Male

DRUGS (2)
  1. ANAKINRA [Suspect]
     Active Substance: ANAKINRA
     Indication: HAEMOPHAGOCYTIC LYMPHOHISTIOCYTOSIS
  2. METHYLPREDNISOLONE. [Concomitant]
     Active Substance: METHYLPREDNISOLONE

REACTIONS (6)
  - Off label use [Unknown]
  - Sepsis [Unknown]
  - Thrombosis [Unknown]
  - Neutropenia [Unknown]
  - Haemorrhage [Unknown]
  - Lymphadenopathy mediastinal [Unknown]
